FAERS Safety Report 10038817 (Version 1)
Quarter: 2014Q1

REPORT INFORMATION
  Report Type: Spontaneous
  Country: US (occurrence: US)
  Receive Date: 20140326
  Receipt Date: 20140326
  Transmission Date: 20141002
  Serious: Yes (Hospitalization)
  Sender: FDA-Public Use
  Company Number: US-GLAXOSMITHKLINE-A1066104A

PATIENT
  Age: 75 Year
  Sex: Female

DRUGS (6)
  1. ADVAIR [Suspect]
     Indication: CHRONIC OBSTRUCTIVE PULMONARY DISEASE
     Route: 055
  2. CALCITONIN [Concomitant]
  3. OXYCODONE [Concomitant]
  4. FENTANYL [Concomitant]
  5. BLOOD PRESSURE MEDICATION [Concomitant]
  6. GABAPENTIN [Concomitant]

REACTIONS (2)
  - Cancer pain [Unknown]
  - Bedridden [Unknown]
